FAERS Safety Report 9798689 (Version 1)
Quarter: 2014Q1

REPORT INFORMATION
  Report Type: Spontaneous
  Country: US (occurrence: US)
  Receive Date: 20140106
  Receipt Date: 20140106
  Transmission Date: 20141002
  Serious: No
  Sender: FDA-Public Use
  Company Number: US-GILEAD-2010-0029821

PATIENT
  Age: 74 Year
  Sex: Female

DRUGS (12)
  1. LETAIRIS [Suspect]
     Indication: COR PULMONALE CHRONIC
     Route: 048
     Dates: start: 20100120
  2. HCTZ [Concomitant]
  3. LOTEMAX [Concomitant]
  4. PRILOSEC [Concomitant]
  5. ASPIRIN [Concomitant]
  6. VYTORIN [Concomitant]
  7. SYNTHROID [Concomitant]
  8. CLARITIN [Concomitant]
  9. MVI [Concomitant]
  10. NASONEX [Concomitant]
  11. TYLENOL [Concomitant]
  12. ASMANEX [Concomitant]

REACTIONS (1)
  - Anaemia [Not Recovered/Not Resolved]
